FAERS Safety Report 13371344 (Version 1)
Quarter: 2017Q1

REPORT INFORMATION
  Report Type: Spontaneous
  Country: US (occurrence: US)
  Receive Date: 20170324
  Receipt Date: 20170324
  Transmission Date: 20170429
  Serious: Yes (Other)
  Sender: FDA-Public Use
  Company Number: US-ALLERGAN-1709504US

PATIENT
  Age: 59 Year
  Sex: Female
  Weight: 64.4 kg

DRUGS (3)
  1. TRAVATAN [Concomitant]
     Active Substance: TRAVOPROST
     Indication: GLAUCOMA
     Dosage: 2 GTT, QD
     Route: 047
     Dates: start: 1999
  2. ARMOUR THYROID [Suspect]
     Active Substance: THYROID, PORCINE
     Indication: HYPOTHYROIDISM
     Dosage: UNK
     Route: 048
     Dates: start: 2013
  3. ESTROPIPATE. [Concomitant]
     Active Substance: ESTROPIPATE
     Indication: HOT FLUSH
     Dosage: 1 DF, QD
     Dates: start: 1988

REACTIONS (2)
  - Chest pain [Recovered/Resolved]
  - Feeling jittery [Recovered/Resolved]

NARRATIVE: CASE EVENT DATE: 2013
